FAERS Safety Report 16149893 (Version 2)
Quarter: 2019Q2

REPORT INFORMATION
  Report Type: Spontaneous
  Country: AU (occurrence: AU)
  Receive Date: 20190403
  Receipt Date: 20190411
  Transmission Date: 20190711
  Serious: Yes (Hospitalization)
  Sender: FDA-Public Use
  Company Number: AU-B.I. PHARMACEUTICALS,INC./RIDGEFIELD-2019-BI-015280

PATIENT
  Age: 64 Year
  Sex: Male
  Weight: 62 kg

DRUGS (3)
  1. JARDIAMET [Suspect]
     Active Substance: EMPAGLIFLOZIN\METFORMIN HYDROCHLORIDE
     Indication: DIABETES MELLITUS
     Dosage: UNIT DOSE: 12.5/500 MILLIGRAM
     Route: 065
     Dates: start: 20190205, end: 20190322
  2. METFORMIN [Concomitant]
     Active Substance: METFORMIN HYDROCHLORIDE
     Indication: PRODUCT USED FOR UNKNOWN INDICATION
     Route: 065
     Dates: start: 2009
  3. BYDUREON [Concomitant]
     Active Substance: EXENATIDE
     Indication: PRODUCT USED FOR UNKNOWN INDICATION
     Route: 065
     Dates: start: 20190107, end: 20190322

REACTIONS (1)
  - Diabetic ketoacidosis [Recovered/Resolved]

NARRATIVE: CASE EVENT DATE: 20190322
